FAERS Safety Report 16341494 (Version 1)
Quarter: 2019Q2

REPORT INFORMATION
  Report Type: Spontaneous
  Country: US (occurrence: US)
  Receive Date: 20190521
  Receipt Date: 20190521
  Transmission Date: 20190711
  Serious: No
  Sender: FDA-Public Use
  Company Number: None

PATIENT
  Age: 30 Year
  Sex: Female
  Weight: 55.34 kg

DRUGS (5)
  1. PARAGARD T 380A [Suspect]
     Active Substance: COPPER
  2. PROBIOTICS [Concomitant]
     Active Substance: PROBIOTICS NOS
  3. VITAMIN D [Concomitant]
     Active Substance: VITAMIN D NOS
  4. CALCIUM [Concomitant]
     Active Substance: CALCIUM
  5. IRON [Concomitant]
     Active Substance: IRON

REACTIONS (2)
  - Complication of device removal [None]
  - Device breakage [None]
